FAERS Safety Report 12882949 (Version 2)
Quarter: 2017Q4

REPORT INFORMATION
  Report Type: Spontaneous
  Country: US (occurrence: US)
  Receive Date: 20161025
  Receipt Date: 20171024
  Transmission Date: 20180320
  Serious: No
  Sender: FDA-Public Use
  Company Number: US-SA-2015SA168168

PATIENT
  Age: 23 Year
  Sex: Male
  Weight: 72 kg

DRUGS (21)
  1. SODIUM CHLORIDE. [Concomitant]
     Active Substance: SODIUM CHLORIDE
  2. ALBUTEROL SULFATE. [Concomitant]
     Active Substance: ALBUTEROL SULFATE
     Dosage: DOSE: 1 VIAL VIA NEBULIZER EVERY 4 HR AS NEEDED WHEEZE OR COUGH
  3. CETIRIZINE HYDROCHLORIDE. [Concomitant]
     Active Substance: CETIRIZINE HYDROCHLORIDE
     Route: 048
  4. LINCOMYCIN. [Concomitant]
     Active Substance: LINCOMYCIN
  5. NORMAL SALINE [Concomitant]
     Active Substance: SODIUM CHLORIDE
  6. LEVOCARNITINE. [Concomitant]
     Active Substance: LEVOCARNITINE
     Dosage: DOSE/FREQUENCY: 5 ML FOUR TIMES A DAY
  7. ATENOLOL. [Concomitant]
     Active Substance: ATENOLOL
     Dosage: DOSE: 1 TABLET BY MOUTH AT BEDTIME
     Route: 048
  8. DOMEBORO [Concomitant]
     Active Substance: ALUMINUM ACETATE
  9. CALCIUM D [Concomitant]
     Active Substance: CALCIUM\VITAMIN D
  10. CLINDAMAX [Concomitant]
     Active Substance: CLINDAMYCIN PHOSPHATE
  11. ZADITOR [Concomitant]
     Active Substance: KETOTIFEN FUMARATE
     Dosage: DOSE.FREQUENCY: 1-2 GTTS IN AFFECTED EYE Q 12 HRS AS NEEDED FOR REDNES AND DRAINAGE
  12. ANUSOL HC [Concomitant]
     Active Substance: HYDROCORTISONE
     Dosage: DOSE/FREQUENCY: APPLY TO EXTERNAL HEM. BID PRN
  13. TRIAMCINOLONE ACETONIDE. [Concomitant]
     Active Substance: TRIAMCINOLONE ACETONIDE
  14. BENEFIBER [Concomitant]
     Active Substance: STARCH, WHEAT
     Dosage: DOSE: 1 TABLESPOON PER DAY AS NEEDED
  15. SULFASALAZINE. [Concomitant]
     Active Substance: SULFASALAZINE
     Dosage: DOSE: 250 MG/5 ML GIVE 10 ML PER TUBE THREE TIMES A DAY SPLIT INTO 4 BOTTLES BLUE CAPS
  16. VENTOLIN HFA [Concomitant]
     Active Substance: ALBUTEROL SULFATE
     Dosage: ?DOSE: 108 (90 BASE)/ACT?FREQUENCY: 2 PUFFS Q4 HRS PRN COUGH OR WHEEZE
  17. ALANINE [Concomitant]
     Active Substance: ALANINE
  18. LUMIZYME [Suspect]
     Active Substance: ALGLUCOSIDASE ALFA
     Indication: GLYCOGEN STORAGE DISEASE TYPE II
     Route: 041
  19. CIPRODEX [Concomitant]
     Active Substance: CIPROFLOXACIN HYDROCHLORIDE\DEXAMETHASONE
  20. FOLIC ACID. [Concomitant]
     Active Substance: FOLIC ACID
  21. PROAIR HFA [Concomitant]
     Active Substance: ALBUTEROL SULFATE
     Dosage: FREQUENCY: 2 PUFFS EVERY 4 AS NEEDED COUGH OR WHEEZE

REACTIONS (2)
  - Asthenia [Not Recovered/Not Resolved]
  - Therapeutic response decreased [Unknown]
